FAERS Safety Report 5334163-0 (Version None)
Quarter: 2007Q2

REPORT INFORMATION
  Report Type: 
  Country: None (occurrence: None)
  Receive Date: 20070522
  Receipt Date: 20070510
  Transmission Date: 20071010
  Serious: Yes (Other)
  Sender: FDA-Public Use
  Company Number: 2007RL000203

PATIENT
  Age: 68 Year
  Sex: Male
  Weight: 85 kg

DRUGS (4)
  1. OMACOR [Suspect]
     Indication: METABOLIC DISORDER
     Dosage: 2 GM;QD;PO
     Route: 048
     Dates: start: 20060601, end: 20061207
  2. CRESTOR [Suspect]
     Indication: METABOLIC DISORDER
     Dosage: 10 MG;QD;PO
     Route: 048
     Dates: start: 20060101, end: 20061207
  3. TENORMIN [Concomitant]
  4. PREVISCAN /00261401/ [Concomitant]

REACTIONS (1)
  - ERYTHEMA MULTIFORME [None]
